FAERS Safety Report 9845242 (Version 2)
Quarter: 2014Q1

REPORT INFORMATION
  Report Type: Spontaneous
  Country: IT (occurrence: None)
  Receive Date: 20140122
  Receipt Date: 20140207
  Transmission Date: 20141002
  Serious: Yes (Other)
  Sender: FDA-Public Use
  Company Number: AUR-APL-2014-00452

PATIENT
  Sex: Male
  Weight: 3.86 kg

DRUGS (13)
  1. AMOXICILLIN+CLAVULANIC ACID [Suspect]
     Indication: COUGH
     Dosage: 100MG/KG (50MG/KG 1 IN 12)
  2. AMOXICILLIN+CLAVULANIC ACID [Suspect]
     Indication: RESPIRATORY DISORDER
     Dosage: 100MG/KG (50MG/KG 1 IN 12)
  3. AMOXICILLIN+CLAVULANIC ACID [Suspect]
     Dosage: 100MG/KG (50MG/KG 1 IN 12)
  4. AMIKACIN [Suspect]
     Indication: SEPSIS
     Dosage: 20MG/KG (10MG/KG 1 IN 12
  5. AMIKACIN [Suspect]
     Dosage: 20MG/KG (10MG/KG 1 IN 12
  6. AMPICILLIN [Suspect]
     Indication: SEPSIS
     Dosage: 75MG/KG (25MG, 1 IN 8)
  7. AMPICILLIN [Suspect]
     Dosage: 75MG/KG (25MG, 1 IN 8)
  8. BECLOMETHASONE [Suspect]
     Indication: INFLAMMATION
     Dosage: 6 IN 1 DAY
     Route: 055
  9. BECLOMETHASONE [Suspect]
     Dosage: 6 IN 1 DAY
     Route: 055
  10. CEFTAZIDIME (CEFTAZIDIME) [Suspect]
     Indication: PRODUCT USED FOR UNKNOWN INDICATION
  11. TEICOPLANIN [Suspect]
     Indication: RESPIRATORY FAILURE
  12. SALBUTAMOL [Suspect]
     Indication: INFLAMMATION
  13. NITRIC OXIDE (NITRIC OXIDE) [Concomitant]

REACTIONS (3)
  - Candida pneumonia [None]
  - Klebsiella test positive [None]
  - No therapeutic response [None]
